FAERS Safety Report 17813842 (Version 1)
Quarter: 2020Q2

REPORT INFORMATION
  Report Type: Spontaneous
  Country: ES (occurrence: ES)
  Receive Date: 20200521
  Receipt Date: 20200521
  Transmission Date: 20200714
  Serious: Yes (Other)
  Sender: FDA-Public Use
  Company Number: ES-JNJFOC-20200518237

PATIENT
  Age: 55 Year
  Sex: Male
  Weight: 70 kg

DRUGS (6)
  1. AZITROMICINA [Suspect]
     Active Substance: AZITHROMYCIN DIHYDRATE
     Indication: COVID-19
     Route: 042
     Dates: start: 202003, end: 202004
  2. MIDAZOLAM. [Suspect]
     Active Substance: MIDAZOLAM
     Indication: COVID-19
     Route: 065
     Dates: start: 202003, end: 202004
  3. HYDROXYCHLOROQUINE [Suspect]
     Active Substance: HYDROXYCHLOROQUINE
     Indication: COVID-19
     Dosage: 200MG/12H
     Route: 048
     Dates: start: 20200326, end: 20200407
  4. KALETRA [Suspect]
     Active Substance: LOPINAVIR\RITONAVIR
     Indication: COVID-19
     Dosage: 5 ML/12H
     Route: 048
     Dates: start: 20200326, end: 20200411
  5. DUROGESIC MATRIX [Suspect]
     Active Substance: FENTANYL
     Indication: COVID-19
     Route: 065
     Dates: start: 202003, end: 202004
  6. CEFTRIAXONE. [Suspect]
     Active Substance: CEFTRIAXONE
     Indication: COVID-19
     Route: 042
     Dates: start: 202003, end: 202004

REACTIONS (3)
  - Product use in unapproved indication [Unknown]
  - Tinnitus [Not Recovered/Not Resolved]
  - Off label use [Unknown]

NARRATIVE: CASE EVENT DATE: 20200421
